FAERS Safety Report 9222628 (Version 2)
Quarter: 2014Q3

REPORT INFORMATION
  Report Type: Spontaneous
  Country: US (occurrence: None)
  Receive Date: 20120914
  Receipt Date: 20140915
  Transmission Date: 20150326
  Serious: Yes (Other)
  Sender: FDA-Public Use
  Company Number: JPI-P-021650

PATIENT
  Age: 38 Year
  Sex: Female
  Weight: 97.7 kg

DRUGS (5)
  1. ALBUTEROL (SALBUTAMOL) UNKNOWN [Concomitant]
  2. MOMETASONE FUROATE ( MOMETASONE FOROATE) NASAL DROP [Concomitant]
  3. LORATADINE (LORATADINE) (UNKNOWN) [Concomitant]
  4. XYREM [Suspect]
     Active Substance: SODIUM OXYBATE
     Indication: FIBROMYALGIA
     Route: 048
     Dates: start: 20120328
  5. XYREM [Suspect]
     Active Substance: SODIUM OXYBATE
     Indication: HYPERSOMNIA
     Route: 048
     Dates: start: 20120328

REACTIONS (5)
  - Medical device removal [None]
  - Ankle fracture [None]
  - Nausea [None]
  - Balance disorder [None]
  - Procedural pain [None]

NARRATIVE: CASE EVENT DATE: 20120513
